FAERS Safety Report 8038846-3 (Version None)
Quarter: 2012Q1

REPORT INFORMATION
  Report Type: 
  Country: None (occurrence: None)
  Receive Date: 20120111
  Receipt Date: 20111207
  Transmission Date: 20120608
  Serious: No
  Sender: FDA-Public Use
  Company Number: US-AMGEN-USASP2011065292

PATIENT
  Sex: Female

DRUGS (1)
  1. ENBREL [Suspect]
     Indication: RHEUMATOID ARTHRITIS
     Dates: start: 20110901

REACTIONS (11)
  - INJECTION SITE URTICARIA [None]
  - RASH [None]
  - INJECTION SITE HAEMATOMA [None]
  - DRUG EFFECT DECREASED [None]
  - INJECTION SITE WARMTH [None]
  - INJECTION SITE ERYTHEMA [None]
  - ARTHRITIS [None]
  - INJECTION SITE PRURITUS [None]
  - URTICARIA [None]
  - FATIGUE [None]
  - INJECTION SITE SWELLING [None]
